FAERS Safety Report 8177939-7 (Version None)
Quarter: 2012Q1

REPORT INFORMATION
  Report Type: 
  Country: None (occurrence: None)
  Receive Date: 20120130
  Receipt Date: 20110404
  Transmission Date: 20120608
  Serious: Yes (Other)
  Sender: FDA-Public Use
  Company Number: 030716

PATIENT
  Sex: Male

DRUGS (2)
  1. KEPPRA [Suspect]
     Indication: PARTIAL SEIZURES
     Dosage: (1500 MG BID)
  2. LAMICTAL [Suspect]
     Indication: PARTIAL SEIZURES
     Dosage: (200 MG QD)

REACTIONS (1)
  - HALLUCINATION [None]
